FAERS Safety Report 25404913 (Version 1)
Quarter: 2025Q2

REPORT INFORMATION
  Report Type: Spontaneous
  Country: US (occurrence: US)
  Receive Date: 20250606
  Receipt Date: 20250606
  Transmission Date: 20250716
  Serious: No
  Sender: PIERRE FABRE MEDICAMENT
  Company Number: US-PFM-2024-04741

PATIENT
  Sex: Female
  Weight: 4.63 kg

DRUGS (2)
  1. HEMANGEOL [Suspect]
     Active Substance: PROPRANOLOL HYDROCHLORIDE
     Indication: Haemangioma
     Dosage: 1.6 ML, BID (2/DAY)
     Dates: start: 20240823
  2. HEMANGEOL [Suspect]
     Active Substance: PROPRANOLOL HYDROCHLORIDE

REACTIONS (4)
  - Poor quality sleep [Recovering/Resolving]
  - Refusal of treatment by patient [Unknown]
  - Product administered to patient of inappropriate age [Unknown]
  - Off label use [Unknown]
